FAERS Safety Report 7522383-6 (Version None)
Quarter: 2011Q2

REPORT INFORMATION
  Report Type: 
  Country: None (occurrence: None)
  Receive Date: 20110603
  Receipt Date: 20110520
  Transmission Date: 20111010
  Serious: Yes (Hospitalization)
  Sender: FDA-Public Use
  Company Number: US-ELI_LILLY_AND_COMPANY-US201105007367

PATIENT
  Sex: Female

DRUGS (4)
  1. XANAX [Concomitant]
  2. CYMBALTA [Suspect]
     Indication: DEPRESSION
     Dosage: 90 MG, QD
     Dates: start: 20050101
  3. SIMVASTATIN [Concomitant]
  4. BENICAR [Concomitant]

REACTIONS (2)
  - DEPRESSION [None]
  - TRANSIENT ISCHAEMIC ATTACK [None]
